FAERS Safety Report 25858693 (Version 1)
Quarter: 2025Q3

REPORT INFORMATION
  Report Type: Report from Study
  Country: EU (occurrence: EU)
  Receive Date: 20250929
  Receipt Date: 20250929
  Transmission Date: 20251020
  Serious: Yes (Death)
  Sender: PFIZER
  Company Number: EU-SEATTLE GENETICS-2022SGN11952

PATIENT

DRUGS (2)
  1. ADCETRIS [Suspect]
     Active Substance: BRENTUXIMAB VEDOTIN
     Indication: Peripheral T-cell lymphoma unspecified
     Dosage: 1.8 MG/KG ON THE FIRST DAY OF EACH CYCLE.  CYCLES WERE REPEATED EVERY 3 WEEKS
     Route: 065
  2. BENDAMUSTINE [Suspect]
     Active Substance: BENDAMUSTINE
     Indication: Peripheral T-cell lymphoma unspecified
     Dosage: 90 MG/M2 ON DAY 1 AND DAY 2.  CYCLES WERE REPEATED EVERY 3 WEEKS
     Route: 065

REACTIONS (1)
  - Toxicity to various agents [Fatal]
